FAERS Safety Report 4768601-9 (Version None)
Quarter: 2005Q3

REPORT INFORMATION
  Report Type: 
  Country: None (occurrence: None)
  Receive Date: 20050914
  Receipt Date: 20050907
  Transmission Date: 20060218
  Serious: Yes (Death, Hospitalization)
  Sender: FDA-Public Use
  Company Number: US-JNJFOC-20050902366

PATIENT
  Age: 76 Year
  Sex: Female

DRUGS (5)
  1. ACETAMINOPHEN [Suspect]
     Route: 048
  2. ACETAMINOPHEN [Suspect]
     Indication: SUICIDE ATTEMPT
     Route: 048
  3. ESOMEPRAZOLE [Suspect]
     Indication: SUICIDE ATTEMPT
     Route: 048
  4. RABEPRAZOLE SODIUM [Suspect]
     Indication: SUICIDE ATTEMPT
     Route: 048
  5. CIMETIDINE [Suspect]
     Indication: SUICIDE ATTEMPT
     Route: 048

REACTIONS (5)
  - COMPLETED SUICIDE [None]
  - HEPATIC FAILURE [None]
  - INTENTIONAL MISUSE [None]
  - RENAL FAILURE [None]
  - SEPTIC SHOCK [None]
